FAERS Safety Report 22974372 (Version 2)
Quarter: 2024Q4

REPORT INFORMATION
  Report Type: Report from Study
  Country: US (occurrence: US)
  Receive Date: 20230923
  Receipt Date: 20241004
  Transmission Date: 20250115
  Serious: Yes (Other)
  Sender: NOVARTIS
  Company Number: US-002147023-NVSC2023US202381

PATIENT
  Sex: Male

DRUGS (2)
  1. LEQVIO [Suspect]
     Active Substance: INCLISIRAN SODIUM
     Indication: Product used for unknown indication
     Dosage: (1/2) SHOT GIVEN 9/12
     Route: 058
  2. LEQVIO [Suspect]
     Active Substance: INCLISIRAN SODIUM
     Dosage: (1/2) 4 APPT 12/12
     Route: 058

REACTIONS (12)
  - Neoplasm malignant [Unknown]
  - Ill-defined disorder [Unknown]
  - Cardiac failure [Unknown]
  - Burn oesophageal [Unknown]
  - Mobility decreased [Unknown]
  - Liver disorder [Unknown]
  - Myocardial infarction [Unknown]
  - Thrombosis [Unknown]
  - Cerebrovascular accident [Unknown]
  - Lower respiratory tract infection [Unknown]
  - Cough [Unknown]
  - Back disorder [Unknown]
